FAERS Safety Report 9500754 (Version 1)
Quarter: 2013Q3

REPORT INFORMATION
  Report Type: Spontaneous
  Country: ES (occurrence: ES)
  Receive Date: 20130905
  Receipt Date: 20130905
  Transmission Date: 20140515
  Serious: Yes (Hospitalization)
  Sender: FDA-Public Use
  Company Number: ES-MYLANLABS-2013S1019209

PATIENT
  Age: 40 Year
  Sex: Female

DRUGS (3)
  1. GEMCITABINE [Suspect]
     Indication: OVARIAN EPITHELIAL CANCER RECURRENT
     Route: 065
  2. CARBOPLATIN [Suspect]
     Indication: OVARIAN EPITHELIAL CANCER RECURRENT
     Dosage: 300 MG/M2
     Route: 065
     Dates: start: 201002
  3. CISPLATIN [Concomitant]
     Indication: OVARIAN EPITHELIAL CANCER RECURRENT
     Route: 065

REACTIONS (3)
  - Cutaneous vasculitis [Recovered/Resolved]
  - Polyarteritis nodosa [Recovered/Resolved]
  - Hypersensitivity [Unknown]
